FAERS Safety Report 7033877-4 (Version None)
Quarter: 2010Q4

REPORT INFORMATION
  Report Type: 
  Country: None (occurrence: None)
  Receive Date: 20101007
  Receipt Date: 20100929
  Transmission Date: 20110411
  Serious: Yes (Other)
  Sender: FDA-Public Use
  Company Number: US-ROXANE LABORATORIES, INC.-2010-RO-01289RO

PATIENT
  Age: 32 Year
  Sex: Male

DRUGS (6)
  1. DIAZEPAM [Suspect]
     Indication: FEAR
  2. DIAZEPAM [Suspect]
     Indication: ANXIETY DISORDER
  3. ALPRAZOLAM [Suspect]
     Dosage: 1 MG
  4. SERTRALINE HYDROCHLORIDE [Suspect]
     Indication: PANIC DISORDER
     Dosage: 3.125 MG
  5. SERTRALINE HYDROCHLORIDE [Suspect]
     Dosage: 9.375 MG
  6. SERTRALINE HYDROCHLORIDE [Suspect]
     Dosage: 6.25 MG

REACTIONS (7)
  - ABNORMAL DREAMS [None]
  - ACTIVATION SYNDROME [None]
  - EJACULATION DELAYED [None]
  - NIGHT SWEATS [None]
  - PANIC ATTACK [None]
  - PHOBIC AVOIDANCE [None]
  - SEDATION [None]
